FAERS Safety Report 6306780-2 (Version None)
Quarter: 2009Q3

REPORT INFORMATION
  Report Type: 
  Country: None (occurrence: None)
  Receive Date: 20090812
  Receipt Date: 20090804
  Transmission Date: 20100115
  Serious: Yes (Death, Other)
  Sender: FDA-Public Use
  Company Number: CA-CELGENEUS-028-20484-09080272

PATIENT

DRUGS (5)
  1. INNOHEP [Suspect]
     Indication: DEEP VEIN THROMBOSIS
     Dosage: 175 IU/KG
     Route: 058
  2. INNOHEP [Suspect]
     Dosage: 175 IU/KG
     Route: 058
  3. WARFARIN SODIUM [Suspect]
     Indication: DEEP VEIN THROMBOSIS
     Route: 048
  4. WARFARIN SODIUM [Suspect]
     Route: 050
  5. VITAMIN K [Concomitant]
     Indication: THROMBOSIS PROPHYLAXIS
     Route: 065

REACTIONS (8)
  - DEATH [None]
  - EMBOLISM VENOUS [None]
  - FRACTURE [None]
  - HAEMORRHAGE [None]
  - NEOPLASM MALIGNANT [None]
  - PULMONARY EMBOLISM [None]
  - SKIN ULCER [None]
  - THROMBOCYTOPENIA [None]
